FAERS Safety Report 11662256 (Version 2)
Quarter: 2015Q4

REPORT INFORMATION
  Report Type: Report from Study
  Country: US (occurrence: US)
  Receive Date: 20151027
  Receipt Date: 20151112
  Transmission Date: 20160304
  Serious: Yes (Hospitalization, Other)
  Sender: FDA-Public Use
  Company Number: US-ABBVIE-15K-163-1488159-00

PATIENT
  Sex: Female
  Weight: 80.36 kg

DRUGS (4)
  1. IMURAN [Concomitant]
     Active Substance: AZATHIOPRINE
     Indication: PRODUCT USED FOR UNKNOWN INDICATION
     Dates: end: 2015
  2. HUMIRA [Suspect]
     Active Substance: ADALIMUMAB
     Indication: RHEUMATOID ARTHRITIS
     Route: 058
     Dates: start: 201410
  3. HUMIRA [Suspect]
     Active Substance: ADALIMUMAB
     Indication: SJOGREN^S SYNDROME
     Route: 058
  4. IMURAN [Concomitant]
     Active Substance: AZATHIOPRINE
     Dates: start: 2015

REACTIONS (5)
  - Compression fracture [Unknown]
  - Acute kidney injury [Recovered/Resolved]
  - Oedema [Recovered/Resolved]
  - Pneumonia [Recovered/Resolved]
  - Deep vein thrombosis [Recovered/Resolved]

NARRATIVE: CASE EVENT DATE: 2015
